FAERS Safety Report 13393307 (Version 2)
Quarter: 2017Q3

REPORT INFORMATION
  Report Type: Report from Study
  Country: None (occurrence: BR)
  Receive Date: 20170331
  Receipt Date: 20170831
  Transmission Date: 20171127
  Serious: Yes (Other)
  Sender: FDA-Public Use
  Company Number: BR-ABBVIE-17P-020-1928968-00

PATIENT
  Sex: Female
  Weight: 80 kg

DRUGS (4)
  1. SYNTHROID [Suspect]
     Active Substance: LEVOTHYROXINE SODIUM
     Indication: HYPOTHYROIDISM
     Dosage: DAILY DOSE: 88 MCG IN THE MORNING (AFTER FASTING)
     Route: 065
  2. DUPHASTON [Concomitant]
     Active Substance: DYDROGESTERONE
     Indication: PLANNING TO BECOME PREGNANT
     Dosage: SINCE THE 14TH DAY OF MENSTRUAL CYCLE
     Route: 048
  3. CLOMID [Concomitant]
     Active Substance: CLOMIPHENE CITRATE
     Indication: PLANNING TO BECOME PREGNANT
     Dosage: FROM THE THIRD TO SEVENTH DAY OF MENSTRUAL CYCLE
     Route: 048
  4. NATIFA [Concomitant]
     Active Substance: ESTRADIOL
     Indication: PLANNING TO BECOME PREGNANT
     Dosage: SINCE THE THIRD DAY OF MENSTRUAL CYCLE, FOR 11 DAYS IN A ROW
     Route: 048

REACTIONS (5)
  - Leiomyoma [Not Recovered/Not Resolved]
  - Inappropriate schedule of drug administration [Unknown]
  - Vein disorder [Not Recovered/Not Resolved]
  - Varicose vein [Not Recovered/Not Resolved]
  - Pain in extremity [Recovered/Resolved]
